FAERS Safety Report 23046415 (Version 1)
Quarter: 2023Q4

REPORT INFORMATION
  Report Type: Spontaneous
  Country: NO (occurrence: NO)
  Receive Date: 20231009
  Receipt Date: 20231009
  Transmission Date: 20240109
  Serious: Yes (Hospitalization)
  Sender: FDA-Public Use
  Company Number: NO-PFIZER INC-202300314331

PATIENT
  Age: 7 Decade
  Sex: Male

DRUGS (7)
  1. LORLATINIB [Suspect]
     Active Substance: LORLATINIB
     Indication: Lung adenocarcinoma
     Dosage: 100 MG
     Dates: start: 202110, end: 202112
  2. LORLATINIB [Suspect]
     Active Substance: LORLATINIB
     Dosage: 50 MG
     Dates: start: 202112
  3. LORLATINIB [Suspect]
     Active Substance: LORLATINIB
     Dosage: 75 MG
  4. LORLATINIB [Suspect]
     Active Substance: LORLATINIB
     Dosage: 50 MG
     Dates: start: 202205
  5. BRIGATINIB [Suspect]
     Active Substance: BRIGATINIB
     Indication: Lung adenocarcinoma
     Dosage: UNK
     Dates: start: 202201, end: 2022
  6. BRIGATINIB [Suspect]
     Active Substance: BRIGATINIB
     Dosage: HALF DOSE
     Dates: start: 202203
  7. LITHIUM [Concomitant]
     Active Substance: LITHIUM
     Dosage: UNK

REACTIONS (3)
  - Fatigue [Unknown]
  - Muscle twitching [Unknown]
  - Mental disorder [Not Recovered/Not Resolved]

NARRATIVE: CASE EVENT DATE: 20211201
